FAERS Safety Report 7461172-8 (Version None)
Quarter: 2011Q2

REPORT INFORMATION
  Report Type: 
  Country: None (occurrence: None)
  Receive Date: 20110505
  Receipt Date: 20110426
  Transmission Date: 20111010
  Serious: Yes (Hospitalization, Other)
  Sender: FDA-Public Use
  Company Number: US-ASTRAZENECA-2010SE30810

PATIENT
  Age: 59 Year
  Sex: Male
  Weight: 86.2 kg

DRUGS (5)
  1. AZOR [Concomitant]
     Route: 048
  2. METOPROLOL SUCCINATE [Concomitant]
     Route: 048
  3. CRESTOR [Suspect]
     Route: 048
     Dates: start: 20010101
  4. JANUVIA [Concomitant]
     Route: 048
  5. PLAVIX [Concomitant]
     Route: 048

REACTIONS (4)
  - ARTERIAL THROMBOSIS [None]
  - HOSPITALISATION [None]
  - STENT PLACEMENT [None]
  - TYPE 2 DIABETES MELLITUS [None]
